FAERS Safety Report 4319868-2 (Version None)
Quarter: 2004Q1

REPORT INFORMATION
  Report Type: 
  Country: None (occurrence: None)
  Receive Date: 20040316
  Receipt Date: 20040302
  Transmission Date: 20041129
  Serious: Yes (Hospitalization)
  Sender: FDA-Public Use
  Company Number: US066518

PATIENT
  Age: 32 Year
  Sex: Female

DRUGS (2)
  1. ETANERCEPT [Suspect]
     Indication: GRAFT VERSUS HOST DISEASE
     Dosage: 24 MG, 2 IN 1 WEEKS, SC
     Route: 058
     Dates: start: 20040204, end: 20040204
  2. METHYLPREDNISOLONE SODIUM SUCCINATE [Concomitant]

REACTIONS (3)
  - BLISTER [None]
  - SKIN DESQUAMATION [None]
  - SKIN LESION [None]
